FAERS Safety Report 25816671 (Version 3)
Quarter: 2025Q4

REPORT INFORMATION
  Report Type: Spontaneous
  Country: CN (occurrence: None)
  Receive Date: 20250918
  Receipt Date: 20251017
  Transmission Date: 20260118
  Serious: Yes (Hospitalization)
  Sender: UCB
  Company Number: CN-UCBSA-2025056227

PATIENT
  Age: 18 Year

DRUGS (1)
  1. BIMZELX [Suspect]
     Active Substance: BIMEKIZUMAB-BKZX
     Indication: Ankylosing spondylitis
     Dosage: 160 MILLIGRAM, UNK

REACTIONS (3)
  - Hypersensitivity [Recovered/Resolved]
  - Hernia [Unknown]
  - Hernia repair [Recovered/Resolved]
